FAERS Safety Report 4840664-1 (Version None)
Quarter: 2005Q4

REPORT INFORMATION
  Report Type: 
  Country: None (occurrence: None)
  Receive Date: 20051126
  Receipt Date: 20040924
  Transmission Date: 20060501
  Serious: Yes (Hospitalization)
  Sender: FDA-Public Use
  Company Number: 440025K04USA

PATIENT
  Sex: Male

DRUGS (1)
  1. SEROSTIM [Suspect]
     Indication: CACHEXIA
     Dosage: 6 MG, SEE IMAGE
     Dates: start: 20040701, end: 20040801

REACTIONS (3)
  - BLOOD GLUCOSE INCREASED [None]
  - FEELING ABNORMAL [None]
  - WEIGHT DECREASED [None]
